FAERS Safety Report 10883176 (Version 1)
Quarter: 2015Q1

REPORT INFORMATION
  Report Type: Spontaneous
  Country: DE (occurrence: DE)
  Receive Date: 20150303
  Receipt Date: 20150303
  Transmission Date: 20150721
  Serious: Yes (Other)
  Sender: FDA-Public Use
  Company Number: DE-PFIZER INC-2015074543

PATIENT
  Age: 60 Year
  Sex: Female

DRUGS (3)
  1. CYCLOSPORINE A [Suspect]
     Active Substance: CYCLOSPORINE
     Indication: PYODERMA GANGRENOSUM
     Dosage: 300 MG/D
     Dates: start: 2003
  2. METHYLPREDNISOLONE. [Suspect]
     Active Substance: METHYLPREDNISOLONE
     Indication: PYODERMA GANGRENOSUM
     Dosage: 16 MG/D
     Dates: start: 2003
  3. MYCOPHENOLATE MOFETIL. [Suspect]
     Active Substance: MYCOPHENOLATE MOFETIL
     Indication: PYODERMA GANGRENOSUM
     Dosage: 2 G/D
     Dates: start: 2003

REACTIONS (3)
  - Mycobacterium chelonae infection [Recovered/Resolved]
  - Skin infection [Recovered/Resolved]
  - Condition aggravated [Recovered/Resolved]
